FAERS Safety Report 16819579 (Version 2)
Quarter: 2019Q3

REPORT INFORMATION
  Report Type: Report from Study
  Country: US (occurrence: US)
  Receive Date: 20190917
  Receipt Date: 20190923
  Transmission Date: 20191005
  Serious: Yes (Hospitalization)
  Sender: FDA-Public Use
  Company Number: US-ACTELION-A-NJ2018-169121

PATIENT
  Age: 57 Year
  Sex: Female
  Weight: 70.3 kg

DRUGS (5)
  1. URSODIOL. [Concomitant]
     Active Substance: URSODIOL
     Dosage: 300 MCG, BID
  2. TRACLEER [Suspect]
     Active Substance: BOSENTAN
     Indication: PULMONARY HYPERTENSION
     Dosage: 125 MG, BID
     Route: 048
  3. VITAMIN D2 [Suspect]
     Active Substance: ERGOCALCIFEROL
     Indication: VITAMIN D DEFICIENCY
     Dosage: 50000 UNITS PER WEEK
     Route: 065
  4. LEVAQUIN [Concomitant]
     Active Substance: LEVOFLOXACIN
  5. ELIQUIS [Concomitant]
     Active Substance: APIXABAN

REACTIONS (12)
  - Atrial fibrillation [Recovered/Resolved]
  - Cardioversion [Unknown]
  - Vitamin D deficiency [Unknown]
  - Vomiting [Unknown]
  - Blood glucose increased [Unknown]
  - Dizziness [Recovered/Resolved]
  - Nausea [Unknown]
  - Heart rate increased [Unknown]
  - Skin lesion [Unknown]
  - Fluid retention [Unknown]
  - Epistaxis [Unknown]
  - Musculoskeletal chest pain [Unknown]

NARRATIVE: CASE EVENT DATE: 201906
